FAERS Safety Report 10450150 (Version 1)
Quarter: 2014Q3

REPORT INFORMATION
  Report Type: Spontaneous
  Country: BR (occurrence: BR)
  Receive Date: 20140912
  Receipt Date: 20140912
  Transmission Date: 20150326
  Serious: Yes (Other)
  Sender: FDA-Public Use
  Company Number: PHHY2014BR118229

PATIENT
  Age: 4 Year
  Sex: Male

DRUGS (2)
  1. TRILEPTAL [Suspect]
     Active Substance: OXCARBAZEPINE
     Indication: PERIVENTRICULAR LEUKOMALACIA
     Dosage: 5 ML, Q12H
     Route: 048
  2. LIORESAL [Suspect]
     Active Substance: BACLOFEN
     Indication: PERIVENTRICULAR LEUKOMALACIA
     Dosage: 1 DF, Q6H
     Route: 048

REACTIONS (1)
  - Partial seizures [Recovered/Resolved]
